FAERS Safety Report 18647735 (Version 1)
Quarter: 2020Q4

REPORT INFORMATION
  Report Type: Spontaneous
  Country: US (occurrence: US)
  Receive Date: 20201222
  Receipt Date: 20201222
  Transmission Date: 20210114
  Serious: No
  Sender: FDA-Public Use
  Company Number: US-RECKITT BENCKISER HEALTHCARE INT LIMITED-RB-88205-2020

PATIENT
  Age: 86 Year
  Sex: Female

DRUGS (2)
  1. MUCINEX DM MAXIMUM STRENGTH [Suspect]
     Active Substance: DEXTROMETHORPHAN HYDROBROMIDE\GUAIFENESIN
     Indication: COUGH
     Dosage: 1200 MILLIGRAM, QD
     Route: 065
     Dates: end: 20200605
  2. DELSYM [Suspect]
     Active Substance: DEXTROMETHORPHAN
     Indication: COUGH
     Dosage: 20 MILLILITER, QD
     Route: 065
     Dates: end: 20200605

REACTIONS (7)
  - Condition aggravated [Recovered/Resolved]
  - Incorrect product administration duration [Recovered/Resolved]
  - Drug ineffective [Recovered/Resolved]
  - Diarrhoea [Recovered/Resolved]
  - Urinary incontinence [Recovered/Resolved]
  - Productive cough [Recovered/Resolved]
  - Anal incontinence [Recovered/Resolved]
